FAERS Safety Report 12862487 (Version 1)
Quarter: 2016Q4

REPORT INFORMATION
  Report Type: Spontaneous
  Country: CN (occurrence: CN)
  Receive Date: 20161019
  Receipt Date: 20161019
  Transmission Date: 20170207
  Serious: Yes (Hospitalization)
  Sender: FDA-Public Use
  Company Number: CN-009507513-1610CHN006071

PATIENT
  Age: 75 Year
  Sex: Male
  Weight: 69 kg

DRUGS (3)
  1. LEVOFLOXACIN HYDROCHLORIDE (+) SODIUM CHLORIDE [Concomitant]
     Active Substance: LEVOFLOXACIN HYDROCHLORIDE
     Indication: SHOCK
     Dosage: 0.5 G, QD
     Route: 041
     Dates: start: 20160713, end: 20160718
  2. TIENAM (BULK) [Suspect]
     Active Substance: CILASTATIN SODIUM\IMIPENEM
     Indication: SHOCK
     Dosage: 2 G, TID
     Route: 041
     Dates: start: 20160713, end: 20160720
  3. SODIUM CHLORIDE. [Concomitant]
     Active Substance: SODIUM CHLORIDE
     Indication: SHOCK
     Dosage: 100 ML, TID
     Route: 041
     Dates: start: 20160713, end: 20160720

REACTIONS (1)
  - Superinfection [Recovering/Resolving]

NARRATIVE: CASE EVENT DATE: 20160720
